FAERS Safety Report 10055958 (Version 2)
Quarter: 2014Q2

REPORT INFORMATION
  Report Type: Spontaneous
  Country: US (occurrence: US)
  Receive Date: 20140403
  Receipt Date: 20140424
  Transmission Date: 20141212
  Serious: No
  Sender: FDA-Public Use
  Company Number: US-PFIZER INC-2014091707

PATIENT
  Age: 41 Year
  Sex: Male
  Weight: 89.88 kg

DRUGS (16)
  1. XALKORI [Suspect]
     Indication: LUNG NEOPLASM MALIGNANT
     Dosage: 200 MG, BID (TUE, THURS, SAT, SUN)
     Route: 048
     Dates: start: 201211, end: 20130820
  2. XALKORI [Suspect]
     Dosage: 200 MG, QD (M, W,F)
     Route: 048
     Dates: start: 201211, end: 20130820
  3. MOTRIN [Concomitant]
     Indication: PAIN
     Dosage: 600 MG, AS NEEDED
  4. ZANTAC [Concomitant]
     Dosage: 150 MG, 1X/DAY
     Route: 048
  5. MIRALAX [Concomitant]
     Dosage: UNK
  6. COLACE [Concomitant]
     Indication: CONSTIPATION
     Dosage: 100 MG, 2X/DAY
     Route: 048
     Dates: start: 20130716
  7. COUMADINE [Concomitant]
     Dosage: 7.5 MG, 1X/DAY
  8. SENOKOT [Concomitant]
     Dosage: 8.6 MG, DAILY
  9. SENOKOT [Concomitant]
     Dosage: 2 TABS AT BEDTIME
  10. COMPAZINE [Concomitant]
     Indication: NAUSEA
     Dosage: ONE DF THREETIMES A DAY PRIOR TO MEALS
     Dates: start: 20121108
  11. COMPAZINE [Concomitant]
     Dosage: ONE DF THREETIMES A DAY PRIOR TO MEALS
     Dates: start: 20121114
  12. COMPAZINE [Concomitant]
     Dosage: EVERY 6 HOURS AS NEEDED
     Route: 048
     Dates: start: 20130205
  13. COMPAZINE [Concomitant]
     Dosage: 10 MG, EVERY 6 HOURS AS NEEDED
     Route: 048
     Dates: start: 20130522
  14. COMPAZINE [Concomitant]
     Dosage: EVERY 6 HOURS  AS NEEDED
     Route: 048
     Dates: start: 20130723
  15. TYLENOL [Concomitant]
     Dosage: UNK
  16. ZOMETA [Concomitant]
     Dosage: UNK
     Dates: start: 201211

REACTIONS (2)
  - Disease progression [Unknown]
  - Lung neoplasm malignant [Unknown]
